FAERS Safety Report 23183516 (Version 1)
Quarter: 2023Q4

REPORT INFORMATION
  Report Type: Spontaneous
  Country: US (occurrence: US)
  Receive Date: 20231114
  Receipt Date: 20231114
  Transmission Date: 20240110
  Serious: No
  Sender: FDA-Public Use
  Company Number: US-LUNDBECK-DKLU3068990

PATIENT
  Age: 38 Year
  Sex: Female

DRUGS (1)
  1. VYEPTI [Suspect]
     Active Substance: EPTINEZUMAB-JJMR
     Indication: Product used for unknown indication
     Route: 041
     Dates: start: 20220101

REACTIONS (4)
  - Lip swelling [Unknown]
  - Nasal congestion [Unknown]
  - Lacrimation increased [Unknown]
  - Cough [Unknown]
